FAERS Safety Report 14318425 (Version 1)
Quarter: 2017Q4

REPORT INFORMATION
  Report Type: Spontaneous
  Country: US (occurrence: US)
  Receive Date: 20171222
  Receipt Date: 20171222
  Transmission Date: 20180321
  Serious: Yes (Hospitalization, Other)
  Sender: FDA-Public Use
  Company Number: US-GLAXOSMITHKLINE-US2017197738

PATIENT
  Age: 67 Year
  Sex: Male

DRUGS (12)
  1. PROCHLORPERAZINE. [Concomitant]
     Active Substance: PROCHLORPERAZINE
  2. AMLODIPINE [Concomitant]
     Active Substance: AMLODIPINE BESYLATE
  3. HYDROMORPHONE [Concomitant]
     Active Substance: HYDROMORPHONE
  4. TAMSULOSIN [Concomitant]
     Active Substance: TAMSULOSIN
  5. BREO ELLIPTA [Suspect]
     Active Substance: FLUTICASONE FUROATE\VILANTEROL TRIFENATATE
     Indication: EMPHYSEMA
     Dosage: 1 PUFF(S), 1D
     Route: 055
  6. DRONABINOL. [Concomitant]
     Active Substance: DRONABINOL
  7. RANITIDINE. [Concomitant]
     Active Substance: RANITIDINE
  8. PREDNISONE. [Concomitant]
     Active Substance: PREDNISONE
  9. LORAZEPAM. [Concomitant]
     Active Substance: LORAZEPAM
  10. VENTOLIN HFA [Suspect]
     Active Substance: ALBUTEROL SULFATE
     Indication: EMPHYSEMA
     Dosage: UNK UNK, U
     Route: 055
  11. ELIQUIS [Concomitant]
     Active Substance: APIXABAN
  12. PROPRANOLOL [Concomitant]
     Active Substance: PROPRANOLOL HYDROCHLORIDE

REACTIONS (1)
  - Renal cancer [Unknown]

NARRATIVE: CASE EVENT DATE: 201702
